FAERS Safety Report 24636101 (Version 1)
Quarter: 2024Q4

REPORT INFORMATION
  Report Type: Report from Study
  Country: DE (occurrence: DE)
  Receive Date: 20241119
  Receipt Date: 20241119
  Transmission Date: 20250115
  Serious: Yes (Other)
  Sender: RANBAXY
  Company Number: DE-SUN PHARMACEUTICAL INDUSTRIES LTD-2024RR-479379

PATIENT
  Age: 5 Year
  Sex: Male

DRUGS (4)
  1. IRINOTECAN [Interacting]
     Active Substance: IRINOTECAN
     Indication: Neuroblastoma
     Dosage: RIST
     Route: 065
  2. TEMOZOLOMIDE [Suspect]
     Active Substance: TEMOZOLOMIDE
     Indication: Neuroblastoma
     Dosage: RIST
     Route: 065
  3. DASATINIB [Suspect]
     Active Substance: DASATINIB
     Indication: Neuroblastoma
     Dosage: RIST
     Route: 065
  4. RAPAMYCIN [Suspect]
     Active Substance: SIROLIMUS
     Indication: Neuroblastoma
     Dosage: RIST
     Route: 065

REACTIONS (3)
  - Immunosuppression [Unknown]
  - Drug interaction [Unknown]
  - Infection [Unknown]
